FAERS Safety Report 5632078-1 (Version None)
Quarter: 2008Q1

REPORT INFORMATION
  Report Type: 
  Country: None (occurrence: None)
  Receive Date: 20080220
  Receipt Date: 20080212
  Transmission Date: 20080703
  Serious: Yes (Hospitalization, Disabling)
  Sender: FDA-Public Use
  Company Number: B0489445A

PATIENT
  Age: 44 Year
  Sex: Male

DRUGS (12)
  1. RETROVIR [Suspect]
     Indication: HIV INFECTION
     Route: 065
     Dates: start: 20060623
  2. TELZIR [Suspect]
     Indication: HIV INFECTION
     Route: 065
     Dates: start: 20050329, end: 20060623
  3. COMBIVIR [Suspect]
     Indication: HIV INFECTION
     Route: 065
     Dates: start: 20050928, end: 20060623
  4. EPIVIR [Suspect]
     Indication: HIV INFECTION
     Route: 065
     Dates: start: 19980401
  5. VIREAD [Suspect]
     Indication: HIV INFECTION
     Route: 065
     Dates: start: 20060623
  6. INVIRASE [Suspect]
     Indication: HIV INFECTION
     Route: 065
     Dates: start: 20060623
  7. LYRICA [Suspect]
     Indication: TRIGEMINAL NEURALGIA
     Route: 065
     Dates: start: 20060623, end: 20060701
  8. NEURONTIN [Suspect]
     Indication: TRIGEMINAL NEURALGIA
     Route: 065
     Dates: start: 20060101, end: 20060101
  9. BACTRIM [Suspect]
     Route: 065
     Dates: start: 19980901
  10. NORVIR [Suspect]
     Indication: HIV INFECTION
     Route: 065
     Dates: start: 20040417
  11. VIRACEPT [Concomitant]
     Indication: HIV INFECTION
     Route: 065
     Dates: start: 19980401
  12. ZERIT [Concomitant]
     Indication: HIV INFECTION
     Route: 065
     Dates: start: 19970319, end: 19990511

REACTIONS (17)
  - DEPRESSION [None]
  - DRUG INEFFECTIVE [None]
  - DRUG TOXICITY [None]
  - FACIAL PAIN [None]
  - GLAUCOMA [None]
  - MONONEUROPATHY MULTIPLEX [None]
  - NEURALGIA [None]
  - OPTIC ATROPHY [None]
  - OPTIC NERVE DISORDER [None]
  - OPTIC NEURITIS RETROBULBAR [None]
  - SCIATICA [None]
  - TOOTH ABSCESS [None]
  - TOOTH EXTRACTION [None]
  - TREATMENT NONCOMPLIANCE [None]
  - TRIGEMINAL NEURALGIA [None]
  - VISUAL ACUITY REDUCED [None]
  - VISUAL DISTURBANCE [None]
